FAERS Safety Report 9523289 (Version 6)
Quarter: 2014Q2

REPORT INFORMATION
  Report Type: Spontaneous
  Country: US (occurrence: US)
  Receive Date: 20130913
  Receipt Date: 20140624
  Transmission Date: 20141212
  Serious: Yes (Disabling)
  Sender: FDA-Public Use
  Company Number: US-009507513-1309USA004218

PATIENT
  Sex: Male
  Weight: 79.37 kg

DRUGS (2)
  1. PROPECIA [Suspect]
     Indication: ANDROGENETIC ALOPECIA
     Dosage: 1 MG, QD
     Route: 048
     Dates: start: 20051108
  2. PROPECIA [Suspect]
     Dosage: 1 MG, QD
     Route: 048
     Dates: end: 201204

REACTIONS (15)
  - Anxiety [Not Recovered/Not Resolved]
  - Male orgasmic disorder [Not Recovered/Not Resolved]
  - Ejaculation disorder [Not Recovered/Not Resolved]
  - Erectile dysfunction [Not Recovered/Not Resolved]
  - Semen volume decreased [Not Recovered/Not Resolved]
  - Depression [Not Recovered/Not Resolved]
  - Foot fracture [Unknown]
  - Tendonitis [Unknown]
  - Rib fracture [Unknown]
  - Skin disorder [Unknown]
  - Wrist fracture [Unknown]
  - Myalgia [Unknown]
  - Myositis [Unknown]
  - Large intestine benign neoplasm [Unknown]
  - Rhinitis allergic [Unknown]
